FAERS Safety Report 25172032 (Version 1)
Quarter: 2025Q2

REPORT INFORMATION
  Report Type: Spontaneous
  Country: GB (occurrence: GB)
  Receive Date: 20250408
  Receipt Date: 20250408
  Transmission Date: 20250717
  Serious: Yes (Other)
  Sender: TEVA
  Company Number: GB-MHRA-TPP34659314C14435517YC1743596645405

PATIENT
  Age: 66 Year
  Sex: Male
  Weight: 65 kg

DRUGS (8)
  1. ATORVASTATIN [Suspect]
     Active Substance: ATORVASTATIN
     Indication: Product used for unknown indication
     Route: 065
     Dates: start: 20250113
  2. EYEAZE [Concomitant]
     Indication: Product used for unknown indication
     Route: 065
     Dates: start: 20241014
  3. QVAR [Concomitant]
     Active Substance: BECLOMETHASONE DIPROPIONATE
     Indication: Product used for unknown indication
     Dosage: INHALE 1 DOSE TWICE DAILY
     Route: 055
     Dates: start: 20241014
  4. ALBUTEROL [Concomitant]
     Active Substance: ALBUTEROL
     Indication: Product used for unknown indication
     Route: 055
     Dates: start: 20230814
  5. ROSUVASTATIN [Concomitant]
     Active Substance: ROSUVASTATIN
     Indication: Product used for unknown indication
     Dosage: TAKE ONE DAILY
     Route: 050
     Dates: start: 20250113
  6. RAMIPRIL [Concomitant]
     Active Substance: RAMIPRIL
     Indication: Product used for unknown indication
     Dosage: ONE TO BE TAKEN DAILY
     Route: 065
     Dates: start: 20241014
  7. AMLODIPINE [Concomitant]
     Active Substance: AMLODIPINE BESYLATE
     Indication: Product used for unknown indication
     Dosage: TAKE ONE DAILY
     Route: 065
     Dates: start: 20241014
  8. CARBOMER [Concomitant]
     Active Substance: CARBOMER
     Indication: Product used for unknown indication
     Route: 065
     Dates: start: 20241014

REACTIONS (2)
  - Muscle spasms [Recovered/Resolved]
  - Gastrointestinal disorder [Unknown]
